FAERS Safety Report 16946542 (Version 1)
Quarter: 2019Q4

REPORT INFORMATION
  Report Type: Spontaneous
  Country: US (occurrence: US)
  Receive Date: 20191022
  Receipt Date: 20191022
  Transmission Date: 20200122
  Serious: No
  Sender: FDA-Public Use
  Company Number: US-009507513-1910USA013113

PATIENT
  Age: 28 Year
  Sex: Female

DRUGS (1)
  1. BRIDION [Suspect]
     Active Substance: SUGAMMADEX
     Dosage: UNK, ONCE (ONE TIME ONLY DOSE)
     Route: 042
     Dates: start: 201904

REACTIONS (1)
  - Maternal exposure before pregnancy [Unknown]
